FAERS Safety Report 8429931-2 (Version None)
Quarter: 2012Q2

REPORT INFORMATION
  Report Type: 
  Country: None (occurrence: None)
  Receive Date: 20120612
  Receipt Date: 20120529
  Transmission Date: 20120825
  Serious: No
  Sender: FDA-Public Use
  Company Number: US-ASTRAZENECA-2012SE35315

PATIENT
  Age: 35 Year
  Sex: Female
  Weight: 48.1 kg

DRUGS (16)
  1. SEROQUEL [Suspect]
     Indication: PERSONALITY DISORDER
     Route: 048
  2. SEROQUEL [Suspect]
     Route: 048
     Dates: start: 20120101
  3. SEROQUEL [Suspect]
     Indication: SCHIZOPHRENIA
     Route: 048
  4. CELEXA [Concomitant]
  5. FOLIC ACID [Concomitant]
  6. BENADRYL [Concomitant]
  7. SEROQUEL [Suspect]
     Indication: MAJOR DEPRESSION
     Route: 048
  8. SEROQUEL [Suspect]
     Route: 048
     Dates: start: 20120101
  9. SEROQUEL [Suspect]
     Route: 048
     Dates: start: 20120101
  10. XANAX [Concomitant]
  11. ALLEGRA [Concomitant]
  12. SEROQUEL [Suspect]
     Route: 048
     Dates: start: 20120101
  13. SEROQUEL [Suspect]
     Indication: BIPOLAR I DISORDER
     Route: 048
  14. SEROQUEL [Suspect]
     Indication: BIPOLAR DISORDER
     Route: 048
  15. SEROQUEL [Suspect]
     Route: 048
     Dates: start: 20120101
  16. ADDERALL 5 [Concomitant]

REACTIONS (6)
  - SOMNOLENCE [None]
  - WEIGHT INCREASED [None]
  - MANIA [None]
  - POOR QUALITY SLEEP [None]
  - EATING DISORDER [None]
  - DRUG INEFFECTIVE [None]
